FAERS Safety Report 15832911 (Version 9)
Quarter: 2019Q2

REPORT INFORMATION
  Report Type: Report from Study
  Country: US (occurrence: US)
  Receive Date: 20190116
  Receipt Date: 20190510
  Transmission Date: 20190711
  Serious: Yes (Life-Threatening, Hospitalization)
  Sender: FDA-Public Use
  Company Number: US-EISAI MEDICAL RESEARCH-EC-2019-050524

PATIENT
  Age: 75 Year
  Sex: Female
  Weight: 65.3 kg

DRUGS (13)
  1. VITAMIN D [Concomitant]
     Active Substance: VITAMIN D NOS
     Dates: start: 20180810
  2. RED YEAST [Concomitant]
     Active Substance: YEAST
     Dates: start: 201102, end: 20190102
  3. HYDRALAZINE [Concomitant]
     Active Substance: HYDRALAZINE HYDROCHLORIDE
     Dates: start: 20190111, end: 20190111
  4. PEMBROLIZUMAB. [Suspect]
     Active Substance: PEMBROLIZUMAB
     Route: 041
     Dates: start: 20190212
  5. ASPIRIN. [Concomitant]
     Active Substance: ASPIRIN
     Dates: start: 200801
  6. LOSARTAN. [Concomitant]
     Active Substance: LOSARTAN
     Dates: start: 201102, end: 20190110
  7. EMLA [Concomitant]
     Active Substance: LIDOCAINE\PRILOCAINE
     Dates: start: 201808
  8. KEPPRA [Concomitant]
     Active Substance: LEVETIRACETAM
     Dates: start: 20190111, end: 20190111
  9. LENVATINIB [Suspect]
     Active Substance: LENVATINIB
     Indication: ENDOMETRIAL CANCER
     Route: 048
     Dates: start: 20190104, end: 20190110
  10. COLACE [Concomitant]
     Active Substance: DOCUSATE SODIUM
     Dates: start: 201808, end: 20190209
  11. SENNA [Concomitant]
     Active Substance: SENNA LEAF\SENNOSIDES\SENNOSIDES A AND B
     Dates: start: 201808
  12. PEMBROLIZUMAB. [Suspect]
     Active Substance: PEMBROLIZUMAB
     Indication: ENDOMETRIAL CANCER
     Route: 041
     Dates: start: 20190104, end: 20190104
  13. CALCIUM [Concomitant]
     Active Substance: CALCIUM
     Dates: start: 20180810

REACTIONS (1)
  - Haemorrhage intracranial [Recovered/Resolved with Sequelae]

NARRATIVE: CASE EVENT DATE: 20190111
